FAERS Safety Report 4421296-6 (Version None)
Quarter: 2004Q3

REPORT INFORMATION
  Report Type: 
  Country: None (occurrence: None)
  Receive Date: 20040809
  Receipt Date: 20040719
  Transmission Date: 20050211
  Serious: Yes (Life-Threatening, Hospitalization)
  Sender: FDA-Public Use
  Company Number: AU-MERCK-0407AUS00068

PATIENT
  Age: 67 Year
  Sex: Female
  Weight: 69 kg

DRUGS (10)
  1. ATORVASTATIN CALCIUM [Concomitant]
     Indication: HYPERLIPIDAEMIA
     Route: 065
  2. CALCIUM CARBONATE [Concomitant]
     Indication: OSTEOPOROSIS
     Route: 065
  3. CAPTOPRIL [Concomitant]
     Route: 065
  4. DILTIAZEM HYDROCHLORIDE [Concomitant]
     Indication: ANGINA PECTORIS
     Route: 065
  5. ZETIA [Suspect]
     Indication: HYPERLIPIDAEMIA
     Route: 048
     Dates: start: 20040401, end: 20040518
  6. FUROSEMIDE [Concomitant]
     Indication: OEDEMA
     Route: 065
  7. INSULIN [Concomitant]
     Indication: DIABETES MELLITUS
     Route: 065
  8. LEVOTHYROXINE SODIUM [Concomitant]
     Indication: HYPOTHYROIDISM
     Route: 065
  9. METFORMIN [Concomitant]
     Indication: DIABETES MELLITUS
     Route: 065
  10. WARFARIN [Concomitant]
     Indication: AORTIC VALVE REPLACEMENT
     Route: 065

REACTIONS (5)
  - HAEMATEMESIS [None]
  - MYOCARDIAL INFARCTION [None]
  - OESOPHAGEAL RUPTURE [None]
  - OESOPHAGEAL ULCER [None]
  - OESOPHAGITIS [None]
